FAERS Safety Report 4464065-3 (Version None)
Quarter: 2004Q4

REPORT INFORMATION
  Report Type: 
  Country: None (occurrence: None)
  Receive Date: 20041001
  Receipt Date: 20040923
  Transmission Date: 20050328
  Serious: Yes (Death)
  Sender: FDA-Public Use
  Company Number: US-JNJFOC-20040808550

PATIENT
  Sex: Female
  Weight: 45.36 kg

DRUGS (8)
  1. RISPERDAL [Suspect]
     Indication: DRUG USE FOR UNKNOWN INDICATION
     Route: 065
  2. TIMOLOL MALEATE [Concomitant]
  3. XALANTAN [Concomitant]
  4. TRUSOPT [Concomitant]
  5. ASPIRIN [Concomitant]
  6. SYNTHROID [Concomitant]
  7. LASIX [Concomitant]
  8. CARDIZEM CD [Concomitant]

REACTIONS (5)
  - BLOOD PRESSURE SYSTOLIC INCREASED [None]
  - CEREBROVASCULAR ACCIDENT [None]
  - COMA [None]
  - SYNCOPE [None]
  - WEIGHT DECREASED [None]
